FAERS Safety Report 4867202-1 (Version None)
Quarter: 2005Q4

REPORT INFORMATION
  Report Type: 
  Country: None (occurrence: None)
  Receive Date: 20051222
  Receipt Date: 20051208
  Transmission Date: 20060501
  Serious: Yes (Death)
  Sender: FDA-Public Use
  Company Number: 2020

PATIENT
  Age: 44 Year
  Sex: Female

DRUGS (9)
  1. AVINZA [Suspect]
     Indication: RIB FRACTURE
     Dosage: 120 MG/M^2 QD PO
     Route: 048
     Dates: start: 20050917, end: 20050922
  2. ACETAMINOPHEN [Concomitant]
  3. DIAZEPAM [Concomitant]
  4. DIPHENHYDRAMINE HCL [Concomitant]
  5. FENTANYL [Concomitant]
  6. FLUOXETINE [Concomitant]
  7. HYDROCODONE BITARTRATE + ACETAMINOPHEN [Concomitant]
  8. NORDIAZEPAM [Concomitant]
  9. NORFLUOXETINE [Concomitant]

REACTIONS (5)
  - APNOEA [None]
  - CARDIAC ARREST [None]
  - LETHARGY [None]
  - LOSS OF CONSCIOUSNESS [None]
  - MULTIPLE DRUG OVERDOSE [None]
